FAERS Safety Report 10079918 (Version 2)
Quarter: 2014Q2

REPORT INFORMATION
  Report Type: Spontaneous
  Country: US (occurrence: US)
  Receive Date: 20140415
  Receipt Date: 20140415
  Transmission Date: 20141212
  Serious: No
  Sender: FDA-Public Use
  Company Number: US-009507513-1111USA01523

PATIENT
  Sex: Female

DRUGS (7)
  1. SINGULAIR [Suspect]
     Indication: ASTHMA
     Dosage: 10 MG, QD
     Route: 048
     Dates: start: 200009
  2. PULMICORT [Concomitant]
  3. XOLAIR [Concomitant]
  4. RHINOCORT (BECLOMETHASONE DIPROPIONATE) [Concomitant]
  5. XOPENEX [Concomitant]
     Dosage: UNK UNK, PRN
  6. COLACE [Concomitant]
  7. LASTACAFT [Concomitant]

REACTIONS (2)
  - Exposure during pregnancy [Recovered/Resolved]
  - No adverse event [Unknown]
